FAERS Safety Report 7051203-1 (Version None)
Quarter: 2010Q4

REPORT INFORMATION
  Report Type: 
  Country: None (occurrence: None)
  Receive Date: 20101019
  Receipt Date: 20101019
  Transmission Date: 20110411
  Serious: Yes (Hospitalization)
  Sender: FDA-Public Use
  Company Number: PHHO2004AU07261

PATIENT
  Sex: Male

DRUGS (3)
  1. CERTICAN [Suspect]
     Indication: LUNG TRANSPLANT
     Dosage: CODE NOT BROKEN
     Route: 048
     Dates: start: 20030331, end: 20040521
  2. NEORAL [Suspect]
     Indication: LUNG TRANSPLANT
     Dosage: 25 MG, BID
     Route: 048
     Dates: start: 20020311
  3. PREDNISOLONE [Suspect]
     Indication: LUNG TRANSPLANT
     Dosage: 7.5 MG / DAY
     Route: 048
     Dates: start: 20020311

REACTIONS (4)
  - ASPERGILLOSIS [None]
  - BRONCHOSPASM [None]
  - DYSPNOEA [None]
  - HYPOXIA [None]
